FAERS Safety Report 7685988-8 (Version None)
Quarter: 2011Q3

REPORT INFORMATION
  Report Type: 
  Country: None (occurrence: None)
  Receive Date: 20110816
  Receipt Date: 20110805
  Transmission Date: 20111222
  Serious: Yes (Other)
  Sender: FDA-Public Use
  Company Number: PHHY2011JP27386

PATIENT
  Sex: Male

DRUGS (5)
  1. SELBEX [Concomitant]
     Dosage: 100 MG, UNK
     Route: 048
     Dates: start: 20080215
  2. ALLOPURINOL [Concomitant]
     Dosage: 100 MG, UNK
     Route: 048
     Dates: start: 20080215
  3. BIOFERMIN [Concomitant]
     Dosage: 3 G, UNK
     Route: 048
     Dates: start: 20091204
  4. ZANTAC [Concomitant]
     Dosage: 300 MG, UNK
     Route: 048
     Dates: start: 20100405
  5. TASIGNA [Suspect]
     Indication: CHRONIC MYELOID LEUKAEMIA
     Dosage: 800 MG, DAILY
     Route: 048
     Dates: start: 20100322

REACTIONS (1)
  - LIVER DISORDER [None]
